FAERS Safety Report 15535794 (Version 3)
Quarter: 2019Q1

REPORT INFORMATION
  Report Type: Spontaneous
  Country: US (occurrence: US)
  Receive Date: 20181022
  Receipt Date: 20190321
  Transmission Date: 20190417
  Serious: No
  Sender: FDA-Public Use
  Company Number: US-PFIZER INC-2018426551

PATIENT
  Age: 13 Year
  Sex: Male

DRUGS (1)
  1. EUCRISA [Suspect]
     Active Substance: CRISABOROLE
     Indication: DERMATITIS ATOPIC
     Dosage: 1 G, 2X/DAY (ON THE EYELID) [APPLICATION ON THE AFFECTED AREA]
     Route: 061
     Dates: start: 20181011

REACTIONS (1)
  - Application site pain [Unknown]
